FAERS Safety Report 10495031 (Version 1)
Quarter: 2014Q4

REPORT INFORMATION
  Report Type: Other
  Country: DE (occurrence: DE)
  Receive Date: 20141003
  Receipt Date: 20141003
  Transmission Date: 20150528
  Serious: Yes (Congenital Anomaly)
  Sender: FDA-Public Use
  Company Number: DE-MYLANLABS-2014M1005994

PATIENT

DRUGS (2)
  1. MISOPROSTOL. [Concomitant]
     Active Substance: MISOPROSTOL
     Indication: LABOUR INDUCTION
     Dosage: 32.3. - 32.3. GESTATIONAL WEEK
     Route: 064
     Dates: start: 20140228, end: 20140228
  2. LEVETIRACETAM. [Suspect]
     Active Substance: LEVETIRACETAM
     Indication: EPILEPSY
     Dosage: 2000 MG, QD 2000 [MG/D (VATER) ]/ PROBABLY FURTHER INTAKE. EXPOSITION: PATERNAL (FATHERROUTE OF ADMI
     Route: 064
     Dates: start: 20130716, end: 20131014

REACTIONS (2)
  - Exposure via body fluid [Not Recovered/Not Resolved]
  - Congenital hydrocephalus [Not Recovered/Not Resolved]
